FAERS Safety Report 7549584-5 (Version None)
Quarter: 2011Q2

REPORT INFORMATION
  Report Type: 
  Country: None (occurrence: None)
  Receive Date: 20110615
  Receipt Date: 20110608
  Transmission Date: 20111010
  Serious: Yes (Other)
  Sender: FDA-Public Use
  Company Number: A0930787A

PATIENT
  Age: 84 Year
  Sex: Female

DRUGS (3)
  1. DIABETES MEDICATION [Concomitant]
  2. HIGH BLOOD PRESSURE PILL [Concomitant]
  3. ADVAIR DISKUS 100/50 [Suspect]
     Indication: CHRONIC OBSTRUCTIVE PULMONARY DISEASE
     Dosage: 1PUFF TWICE PER DAY
     Route: 055

REACTIONS (5)
  - ASTHMA [None]
  - DYSPHONIA [None]
  - SINUSITIS [None]
  - PYREXIA [None]
  - BRONCHITIS [None]
